FAERS Safety Report 25350170 (Version 1)
Quarter: 2025Q2

REPORT INFORMATION
  Report Type: Report from Study
  Country: US (occurrence: US)
  Receive Date: 20250523
  Receipt Date: 20250523
  Transmission Date: 20250716
  Serious: Yes (Other)
  Sender: JOHNSON AND JOHNSON
  Company Number: US-JNJFOC-20250519080

PATIENT
  Age: 63 Year
  Sex: Female

DRUGS (12)
  1. SPRAVATO [Suspect]
     Active Substance: ESKETAMINE
     Indication: Depression
     Dates: start: 20240122, end: 20240228
  2. SPRAVATO [Suspect]
     Active Substance: ESKETAMINE
     Dates: start: 20240301, end: 20240301
  3. SPRAVATO [Suspect]
     Active Substance: ESKETAMINE
     Dates: start: 20240308, end: 20240313
  4. SPRAVATO [Suspect]
     Active Substance: ESKETAMINE
     Dates: start: 20240322, end: 20240322
  5. SPRAVATO [Suspect]
     Active Substance: ESKETAMINE
     Dates: start: 20240503, end: 20240513
  6. SPRAVATO [Suspect]
     Active Substance: ESKETAMINE
     Dates: start: 20240603, end: 20240610
  7. SPRAVATO [Suspect]
     Active Substance: ESKETAMINE
     Dates: start: 20240612, end: 20240708
  8. SPRAVATO [Suspect]
     Active Substance: ESKETAMINE
     Dates: start: 20240710, end: 20240821
  9. SPRAVATO [Suspect]
     Active Substance: ESKETAMINE
     Dates: start: 20250505, end: 20250508
  10. SPRAVATO [Suspect]
     Active Substance: ESKETAMINE
     Dates: start: 20250512, end: 20250512
  11. CONCERTA [Concomitant]
     Active Substance: METHYLPHENIDATE HYDROCHLORIDE
     Indication: Product used for unknown indication
  12. LORAZEPAM [Concomitant]
     Active Substance: LORAZEPAM
     Indication: Product used for unknown indication

REACTIONS (1)
  - Sedation [Recovered/Resolved]

NARRATIVE: CASE EVENT DATE: 20250512
